FAERS Safety Report 6416165-6 (Version None)
Quarter: 2009Q4

REPORT INFORMATION
  Report Type: 
  Country: None (occurrence: None)
  Receive Date: 20091023
  Receipt Date: 20091016
  Transmission Date: 20100525
  Serious: Yes (Hospitalization)
  Sender: FDA-Public Use
  Company Number: AE-2009-225

PATIENT
  Age: 71 Year
  Sex: Female

DRUGS (15)
  1. METFORMIN HCL [Suspect]
     Indication: TYPE 2 DIABETES MELLITUS
     Dosage: 500MG,TID,ORAL
     Route: 048
     Dates: start: 20090822, end: 20090822
  2. VERAPAMIL [Suspect]
     Dosage: OD
     Dates: start: 20090821, end: 20090821
  3. BETADINE [Suspect]
     Dates: start: 20090821, end: 20090821
  4. METHYLPREDNISOLONE SODIUM SUCCINATE [Suspect]
     Dates: start: 20090821, end: 20090821
  5. HEPARIN SODIUM [Suspect]
     Dates: start: 20090821, end: 20090821
  6. TOCOPHERYL ACETATE [Suspect]
     Dates: start: 20090821, end: 20090821
  7. VISIPAQUE [Suspect]
     Dates: start: 20090821, end: 20090821
  8. REPAGILINIDE [Suspect]
     Dosage: 0.5MG, TID, ORAL
     Route: 048
     Dates: start: 20090822, end: 20090828
  9. ACETYL SALICYLIC ACID + ACETYLSALICYLATE LYSINE (KARDEGIC) [Suspect]
     Dosage: 160MG, OD, ORAL
     Route: 048
     Dates: start: 20090822
  10. CLOPIDOGREL [Suspect]
     Dosage: 75MG, OD, ORAL
     Route: 048
     Dates: start: 20090822
  11. AMLODIPINE BESYLATE [Suspect]
     Dosage: 10MG, OD, ORAL
     Route: 048
     Dates: start: 20090822
  12. EBASTINE [Concomitant]
  13. MACROGOL [Concomitant]
  14. LOPRAZOLAM MESILATE [Concomitant]
  15. DAFLON (RESPERIDIN, DIOSMIN AND BIOFLAVONOIDS) [Concomitant]

REACTIONS (4)
  - DRUG INEFFECTIVE [None]
  - IDIOPATHIC URTICARIA [None]
  - TOXIC SKIN ERUPTION [None]
  - VIRAL INFECTION [None]
